FAERS Safety Report 21479284 (Version 4)
Quarter: 2023Q2

REPORT INFORMATION
  Report Type: Spontaneous
  Country: US (occurrence: US)
  Receive Date: 20221019
  Receipt Date: 20230509
  Transmission Date: 20230721
  Serious: No
  Sender: FDA-Public Use
  Company Number: US-PFIZER INC-PV202200019860

PATIENT
  Age: 78 Year
  Sex: Female

DRUGS (1)
  1. IBRANCE [Suspect]
     Active Substance: PALBOCICLIB
     Dosage: 100 MG

REACTIONS (11)
  - Gastric disorder [Unknown]
  - Dry skin [Unknown]
  - Pruritus [Unknown]
  - Skin disorder [Unknown]
  - Rash [Unknown]
  - Dandruff [Unknown]
  - Milia [Unknown]
  - Product dose omission issue [Unknown]
  - Gait disturbance [Unknown]
  - Fatigue [Unknown]
  - Dizziness [Unknown]
